FAERS Safety Report 17420659 (Version 1)
Quarter: 2020Q1

REPORT INFORMATION
  Report Type: Report from Study
  Country: CA (occurrence: CA)
  Receive Date: 20200214
  Receipt Date: 20200214
  Transmission Date: 20200409
  Serious: Yes (Death)
  Sender: FDA-Public Use
  Company Number: CA-ASTRAZENECA-2020SE21292

PATIENT
  Age: 20796 Day
  Sex: Male

DRUGS (2)
  1. GIOTRIF (AFATINIB) [Concomitant]
     Dates: start: 20171015, end: 20180821
  2. TAGRISSO [Suspect]
     Active Substance: OSIMERTINIB
     Indication: NON-SMALL CELL LUNG CANCER
     Route: 048
     Dates: start: 20181015

REACTIONS (1)
  - Death [Fatal]

NARRATIVE: CASE EVENT DATE: 20190927
